FAERS Safety Report 9727229 (Version 1)
Quarter: 2013Q4

REPORT INFORMATION
  Report Type: Spontaneous
  Country: US (occurrence: US)
  Receive Date: 20131203
  Receipt Date: 20131203
  Transmission Date: 20140711
  Serious: No
  Sender: FDA-Public Use
  Company Number: US-PFIZER INC-2013341898

PATIENT
  Sex: Female

DRUGS (4)
  1. SALBUTAMOL SULFATE [Suspect]
     Dosage: UNK
  2. SPIRONOLACTONE [Suspect]
  3. SYNTHROID [Suspect]
  4. PREVACID [Suspect]

REACTIONS (1)
  - Drug hypersensitivity [Unknown]
